FAERS Safety Report 5162756-2 (Version None)
Quarter: 2006Q4

REPORT INFORMATION
  Report Type: 
  Country: None (occurrence: None)
  Receive Date: 20061201
  Receipt Date: 20061108
  Transmission Date: 20070319
  Serious: Yes (Other)
  Sender: FDA-Public Use
  Company Number: FR-AVENTIS-200614029FR

PATIENT
  Age: 65 Year
  Sex: Female
  Weight: 69 kg

DRUGS (2)
  1. KETEK [Suspect]
     Indication: BRONCHITIS
     Route: 048
     Dates: start: 20060811, end: 20060813
  2. ACETAMINOPHEN [Concomitant]
     Route: 048

REACTIONS (11)
  - ABDOMINAL PAIN [None]
  - ASTHENIA [None]
  - BILIARY CYST [None]
  - CHOLESTASIS [None]
  - DRUG INTOLERANCE [None]
  - HEPATITIS [None]
  - JAUNDICE [None]
  - MALAISE [None]
  - NAUSEA [None]
  - PRURITUS [None]
  - VERTIGO [None]
